FAERS Safety Report 19304108 (Version 2)
Quarter: 2021Q2

REPORT INFORMATION
  Report Type: Report from Study
  Country: BR (occurrence: BR)
  Receive Date: 20210525
  Receipt Date: 20210617
  Transmission Date: 20210717
  Serious: Yes (Other)
  Sender: FDA-Public Use
  Company Number: NVSC2021BR109956

PATIENT
  Sex: Female
  Weight: 92 kg

DRUGS (3)
  1. FEMARA [Concomitant]
     Active Substance: LETROZOLE
     Indication: PRODUCT USED FOR UNKNOWN INDICATION
     Dosage: UNK 10AM
     Route: 065
  2. KISQALI [Suspect]
     Active Substance: RIBOCICLIB
     Dosage: 3 TABLETS, 20PM
     Route: 065
  3. KISQALI [Suspect]
     Active Substance: RIBOCICLIB
     Indication: PRODUCT USED FOR UNKNOWN INDICATION
     Dosage: APPROXIMATELY(26 MAR 2021)
     Route: 065

REACTIONS (25)
  - Vein disorder [Unknown]
  - Lung disorder [Unknown]
  - Asthenia [Unknown]
  - Diarrhoea [Unknown]
  - Vein rupture [Unknown]
  - Illness [Unknown]
  - Abdominal discomfort [Unknown]
  - Burning sensation [Unknown]
  - Metastases to liver [Unknown]
  - Discomfort [Unknown]
  - Ageusia [Unknown]
  - Movement disorder [Unknown]
  - Dysgeusia [Unknown]
  - Hip fracture [Unknown]
  - Somnolence [Unknown]
  - Nausea [Unknown]
  - Vomiting [Unknown]
  - Bone pain [Unknown]
  - Pain [Unknown]
  - Dehydration [Unknown]
  - Pain in extremity [Unknown]
  - Feeding disorder [Unknown]
  - Metastases to bone [Unknown]
  - Weight decreased [Unknown]
  - Gastrointestinal pain [Unknown]
